FAERS Safety Report 15404404 (Version 1)
Quarter: 2018Q3

REPORT INFORMATION
  Report Type: Spontaneous
  Country: US (occurrence: US)
  Receive Date: 20180912
  Receipt Date: 20180912
  Transmission Date: 20181010
  Serious: No
  Sender: FDA-Public Use
  Company Number: None

PATIENT
  Age: 23 Year
  Sex: Female

DRUGS (1)
  1. LUPRON DEPOT [Suspect]
     Active Substance: LEUPROLIDE ACETATE
     Indication: ENDOMETRIOSIS
     Dosage: 22.5DF 3 MONTHS INTRAMUSCULAR?
     Route: 030
     Dates: start: 20180522, end: 20180801

REACTIONS (1)
  - Bone density decreased [None]

NARRATIVE: CASE EVENT DATE: 20180725
